FAERS Safety Report 10036956 (Version 1)
Quarter: 2014Q1

REPORT INFORMATION
  Report Type: Spontaneous
  Country: US (occurrence: US)
  Receive Date: 20140326
  Receipt Date: 20140326
  Transmission Date: 20141002
  Serious: No
  Sender: FDA-Public Use
  Company Number: US-BIOGENIDEC-2014BI026042

PATIENT
  Age: 24 Year
  Sex: Female
  Weight: 111 kg

DRUGS (1)
  1. TECFIDERA [Suspect]
     Indication: MULTIPLE SCLEROSIS
     Route: 048
     Dates: start: 20140107, end: 20140215

REACTIONS (4)
  - Drug intolerance [Unknown]
  - Abdominal distension [Unknown]
  - Intentional drug misuse [Unknown]
  - Nausea [Unknown]
